FAERS Safety Report 9541351 (Version 2)
Quarter: 2013Q4

REPORT INFORMATION
  Report Type: Report from Study
  Country: US (occurrence: US)
  Receive Date: 20130923
  Receipt Date: 20131108
  Transmission Date: 20140711
  Serious: No
  Sender: FDA-Public Use
  Company Number: US-ALEXION-A201302365

PATIENT
  Age: 47 Year
  Sex: Female
  Weight: 86.62 kg

DRUGS (1)
  1. SOLIRIS [Suspect]
     Indication: PAROXYSMAL NOCTURNAL HAEMOGLOBINURIA
     Dosage: UNK
     Route: 042

REACTIONS (5)
  - Dyspnoea [Unknown]
  - Sneezing [Unknown]
  - Chest discomfort [Unknown]
  - Musculoskeletal chest pain [Unknown]
  - Pain in extremity [Unknown]
